FAERS Safety Report 11108442 (Version 4)
Quarter: 2016Q1

REPORT INFORMATION
  Report Type: Report from Study
  Country: BR (occurrence: BR)
  Receive Date: 20150513
  Receipt Date: 20160308
  Transmission Date: 20160525
  Serious: Yes (Hospitalization, Other)
  Sender: FDA-Public Use
  Company Number: BR-ROCHE-1378564

PATIENT
  Sex: Female
  Weight: 68 kg

DRUGS (8)
  1. ACTEMRA [Suspect]
     Active Substance: TOCILIZUMAB
     Indication: RHEUMATOID ARTHRITIS
     Route: 042
     Dates: start: 20131009, end: 20150505
  2. FOLIC ACID. [Concomitant]
     Active Substance: FOLIC ACID
  3. DOMPERIDONE [Concomitant]
     Active Substance: DOMPERIDONE
     Dosage: CONTINUOUS USE
     Route: 065
  4. SINVASCOR [Concomitant]
     Active Substance: SIMVASTATIN
     Dosage: CONTINUOUS USE
     Route: 065
  5. ACTIVELLE [Concomitant]
     Active Substance: ESTRADIOL\NORETHINDRONE ACETATE
  6. REUQUINOL [Concomitant]
     Active Substance: HYDROXYCHLOROQUINE SULFATE
     Route: 065
  7. LANSOPRAZOLE. [Concomitant]
     Active Substance: LANSOPRAZOLE
     Dosage: CONTINUOUS USE
     Route: 065
  8. METHOTREXATE [Concomitant]
     Active Substance: METHOTREXATE
     Dosage: 8 UNITS (TABLETS OR CAPSULES) EVERY SATURDAY
     Route: 065

REACTIONS (8)
  - Pyrexia [Unknown]
  - Ovarian disorder [Recovering/Resolving]
  - Fallopian tube disorder [Recovering/Resolving]
  - Pharyngeal inflammation [Unknown]
  - Speech disorder [Not Recovered/Not Resolved]
  - Tooth disorder [Recovering/Resolving]
  - Immunodeficiency [Unknown]
  - Oropharyngeal pain [Unknown]
